FAERS Safety Report 15408065 (Version 3)
Quarter: 2018Q4

REPORT INFORMATION
  Report Type: Spontaneous
  Country: AU (occurrence: AU)
  Receive Date: 20180920
  Receipt Date: 20180928
  Transmission Date: 20190204
  Serious: Yes (Other)
  Sender: FDA-Public Use
  Company Number: AU-PFIZER INC-2018380222

PATIENT
  Age: 77 Year
  Sex: Male
  Weight: 125 kg

DRUGS (2)
  1. PREDNISOLONE. [Concomitant]
     Active Substance: PREDNISOLONE
     Indication: BLOOD CREATININE INCREASED
     Dosage: 75 MG, UNK
  2. SULFAMETHOXAZOLE/TRIMETHOPRIM [Suspect]
     Active Substance: SULFAMETHOXAZOLE\TRIMETHOPRIM
     Indication: PNEUMOCYSTIS JIROVECII PNEUMONIA
     Dosage: UNK, 4X/DAY (1600 MG/320 MG)

REACTIONS (3)
  - Renal impairment [Recovering/Resolving]
  - Crystal urine [Recovering/Resolving]
  - Blood creatinine increased [Recovering/Resolving]
